FAERS Safety Report 10071731 (Version 1)
Quarter: 2014Q2

REPORT INFORMATION
  Report Type: Spontaneous
  Country: CN (occurrence: CN)
  Receive Date: 20140411
  Receipt Date: 20140411
  Transmission Date: 20141212
  Serious: Yes (Life-Threatening)
  Sender: FDA-Public Use
  Company Number: CN-009507513-1404CHN005667

PATIENT
  Age: 22 Year
  Sex: Male
  Weight: 58 kg

DRUGS (1)
  1. TIENAM [Suspect]
     Indication: GASTROINTESTINAL INFECTION
     Dosage: 1 G, QD
     Route: 041
     Dates: start: 20121021, end: 20121021

REACTIONS (1)
  - Anaphylactic shock [Recovered/Resolved]
